FAERS Safety Report 24029681 (Version 1)
Quarter: 2024Q2

REPORT INFORMATION
  Report Type: Report from Study
  Country: US (occurrence: US)
  Receive Date: 20240628
  Receipt Date: 20240628
  Transmission Date: 20240715
  Serious: Yes (Other)
  Sender: FDA-Public Use
  Company Number: US-JNJFOC-20181129560

PATIENT
  Age: 68 Year
  Sex: Female

DRUGS (2)
  1. REMICADE [Suspect]
     Active Substance: INFLIXIMAB
     Indication: Psoriasis
     Route: 041
     Dates: start: 20091217, end: 20170615
  2. REMICADE [Suspect]
     Active Substance: INFLIXIMAB
     Route: 041
     Dates: start: 20070601, end: 20091112

REACTIONS (3)
  - Pneumonia [Unknown]
  - Cystitis [Unknown]
  - Candida infection [Unknown]

NARRATIVE: CASE EVENT DATE: 20151101
